FAERS Safety Report 7878917-5 (Version None)
Quarter: 2011Q4

REPORT INFORMATION
  Report Type: 
  Country: None (occurrence: None)
  Receive Date: 20111021
  Receipt Date: 20110709
  Transmission Date: 20120403
  Serious: Yes (Other)
  Sender: FDA-Public Use
  Company Number: 2011SP034140

PATIENT
  Sex: Female

DRUGS (2)
  1. TEMODAR [Suspect]
     Indication: BRAIN NEOPLASM MALIGNANT
     Dates: start: 20060101
  2. PROCRIT [Concomitant]

REACTIONS (7)
  - ATAXIA [None]
  - MENTAL IMPAIRMENT [None]
  - URINARY INCONTINENCE [None]
  - GAIT DISTURBANCE [None]
  - CONFUSIONAL STATE [None]
  - AMNESIA [None]
  - BLOOD COUNT ABNORMAL [None]
